FAERS Safety Report 6447833-8 (Version None)
Quarter: 2009Q4

REPORT INFORMATION
  Report Type: 
  Country: None (occurrence: None)
  Receive Date: 20091120
  Receipt Date: 20091109
  Transmission Date: 20100525
  Serious: Yes (Other)
  Sender: FDA-Public Use
  Company Number: US-JNJFOC-20090904034

PATIENT
  Sex: Male
  Weight: 90.72 kg

DRUGS (3)
  1. REMICADE [Suspect]
     Indication: COLITIS ULCERATIVE
     Dosage: 2 YEARS
     Route: 042
     Dates: start: 20041215
  2. AZATHIOPRINE [Concomitant]
     Route: 048
  3. ASACOL [Concomitant]

REACTIONS (2)
  - INTESTINAL OBSTRUCTION [None]
  - LYMPHOPROLIFERATIVE DISORDER [None]
